FAERS Safety Report 5569989-1 (Version None)
Quarter: 2007Q4

REPORT INFORMATION
  Report Type: 
  Country: None (occurrence: None)
  Receive Date: 20071218
  Receipt Date: 20071112
  Transmission Date: 20080405
  Serious: Yes (Hospitalization)
  Sender: FDA-Public Use
  Company Number: WAES 0711GRC00004

PATIENT
  Age: 58 Year
  Sex: Female

DRUGS (4)
  1. INDOCIN [Suspect]
     Indication: BACK PAIN
     Dosage: RECT
     Route: 054
     Dates: start: 20020101
  2. INDOCIN [Suspect]
     Indication: OSTEOARTHRITIS
     Dosage: RECT
     Route: 054
     Dates: start: 20020101
  3. CLINORIL [Suspect]
     Indication: BACK PAIN
     Dosage: PO
     Route: 048
     Dates: start: 20020101
  4. CLINORIL [Suspect]
     Indication: OSTEOARTHRITIS
     Dosage: PO
     Route: 048
     Dates: start: 20020101

REACTIONS (8)
  - ABDOMINAL PAIN [None]
  - COLONIC STENOSIS [None]
  - CONSTIPATION [None]
  - FIBROSIS [None]
  - GASTROINTESTINAL MUCOSAL DISORDER [None]
  - HAEMOGLOBIN DECREASED [None]
  - LABORATORY TEST ABNORMAL [None]
  - SERUM FERRITIN DECREASED [None]
